FAERS Safety Report 14889706 (Version 1)
Quarter: 2018Q2

REPORT INFORMATION
  Report Type: Spontaneous
  Country: US (occurrence: US)
  Receive Date: 20180514
  Receipt Date: 20180514
  Transmission Date: 20180711
  Serious: No
  Sender: FDA-Public Use
  Company Number: US-ASTRAZENECA-2018SE60613

PATIENT
  Age: 61 Year
  Sex: Male
  Weight: 85.3 kg

DRUGS (3)
  1. NEXIUM 24HR [Suspect]
     Active Substance: ESOMEPRAZOLE MAGNESIUM
     Indication: GASTROOESOPHAGEAL REFLUX DISEASE
     Route: 048
     Dates: start: 20180426
  2. PRAVASTATIN. [Concomitant]
     Active Substance: PRAVASTATIN
     Indication: BLOOD CHOLESTEROL ABNORMAL
     Route: 048
  3. NEXIUM [Suspect]
     Active Substance: ESOMEPRAZOLE MAGNESIUM
     Indication: GASTROOESOPHAGEAL REFLUX DISEASE
     Dosage: 50 MG DAILY STARTED FROM 2003 TO 2008
     Route: 048

REACTIONS (12)
  - Mass [Unknown]
  - Product use issue [Unknown]
  - Limb discomfort [Unknown]
  - Blood cholesterol abnormal [Unknown]
  - Dyspepsia [Recovered/Resolved]
  - Gastrooesophageal reflux disease [Unknown]
  - Weight decreased [Unknown]
  - Weight increased [Unknown]
  - Increased anteroposterior chest diameter [Unknown]
  - Therapy cessation [Unknown]
  - Knee deformity [Unknown]
  - Sinus disorder [Unknown]

NARRATIVE: CASE EVENT DATE: 2008
